FAERS Safety Report 9170760 (Version 1)
Quarter: 2013Q1

REPORT INFORMATION
  Report Type: Spontaneous
  Country: US (occurrence: US)
  Receive Date: 20130319
  Receipt Date: 20130319
  Transmission Date: 20140127
  Serious: No
  Sender: FDA-Public Use
  Company Number: US-PFIZER INC-2013085194

PATIENT
  Sex: Female

DRUGS (1)
  1. GEODON [Suspect]
     Dosage: 80 MG, 1X/DAY (AT NIGHT)

REACTIONS (4)
  - Insomnia [Unknown]
  - Somnolence [Unknown]
  - Blood prolactin increased [Unknown]
  - Thyroid function test abnormal [Unknown]
